FAERS Safety Report 21185886 (Version 1)
Quarter: 2022Q3

REPORT INFORMATION
  Report Type: Spontaneous
  Country: CH (occurrence: CH)
  Receive Date: 20220808
  Receipt Date: 20220808
  Transmission Date: 20221026
  Serious: Yes (Hospitalization, Other)
  Sender: FDA-Public Use
  Company Number: CH-VELOXIS PHARMACEUTICALS-2022VELCH-000517

PATIENT
  Age: 56 Year
  Sex: Female

DRUGS (12)
  1. TACROLIMUS [Interacting]
     Active Substance: TACROLIMUS
     Indication: Product used for unknown indication
     Dosage: 8 MILLIGRAM, QD
  2. TACROLIMUS [Interacting]
     Active Substance: TACROLIMUS
     Dosage: 6 MILLIGRAM, QD
  3. TACROLIMUS [Interacting]
     Active Substance: TACROLIMUS
     Dosage: 6 MILLIGRAM, QD
  4. TACROLIMUS [Interacting]
     Active Substance: TACROLIMUS
     Dosage: 6 MILLIGRAM, QD
  5. TACROLIMUS [Interacting]
     Active Substance: TACROLIMUS
     Dosage: 6 MILLIGRAM, QD
  6. TACROLIMUS [Interacting]
     Active Substance: TACROLIMUS
     Dosage: 3 MILLIGRAM, QD
  7. EVEROLIMUS [Interacting]
     Active Substance: EVEROLIMUS
     Indication: Product used for unknown indication
     Dosage: 5 MILLIGRAM, Q12H
  8. EVEROLIMUS [Interacting]
     Active Substance: EVEROLIMUS
     Dosage: 5 MILLIGRAM, Q12H
  9. EVEROLIMUS [Interacting]
     Active Substance: EVEROLIMUS
     Dosage: 5 MILLIGRAM, Q12H
  10. EVEROLIMUS [Interacting]
     Active Substance: EVEROLIMUS
     Dosage: 5 MILLIGRAM, Q12H
  11. EVEROLIMUS [Interacting]
     Active Substance: EVEROLIMUS
     Dosage: 5 MILLIGRAM, Q12H
  12. EVEROLIMUS [Interacting]
     Active Substance: EVEROLIMUS
     Dosage: 4.5 MILLIGRAM, Q12H

REACTIONS (7)
  - Drug level above therapeutic [Recovered/Resolved]
  - Drug interaction [Recovered/Resolved]
  - Headache [Recovered/Resolved]
  - Toxicity to various agents [Recovered/Resolved]
  - Nausea [Recovered/Resolved]
  - Hypertension [Recovered/Resolved]
  - Off label use [Unknown]
